FAERS Safety Report 4396634-3 (Version None)
Quarter: 2004Q3

REPORT INFORMATION
  Report Type: 
  Country: None (occurrence: None)
  Receive Date: 20040709
  Receipt Date: 20040625
  Transmission Date: 20050211
  Serious: No
  Sender: FDA-Public Use
  Company Number: FABR-10214

PATIENT
  Age: 57 Year
  Sex: Male
  Weight: 75 kg

DRUGS (11)
  1. FABRAZYME [Suspect]
     Indication: FABRY'S DISEASE
     Dosage: 70 MG Q2WKS IV
     Route: 042
     Dates: start: 20021009
  2. WARFARIN SODIUM [Concomitant]
  3. DIGOXIN [Concomitant]
  4. THYROXIN [Concomitant]
  5. ETIDRONATE DISODIUM [Concomitant]
  6. CALCIUM CARBONATE [Concomitant]
  7. ALFACALCIDOL [Concomitant]
  8. VIAZEM XL [Concomitant]
  9. DOXAZOSIN [Concomitant]
  10. VALSARTAN [Concomitant]
  11. NEORAL [Concomitant]

REACTIONS (2)
  - KIDNEY TRANSPLANT REJECTION [None]
  - RENAL IMPAIRMENT [None]
